FAERS Safety Report 7919870-5 (Version None)
Quarter: 2011Q4

REPORT INFORMATION
  Report Type: 
  Country: None (occurrence: None)
  Receive Date: 20111115
  Receipt Date: 20111103
  Transmission Date: 20120403
  Serious: Yes (Other)
  Sender: FDA-Public Use
  Company Number: 2011SP051968

PATIENT
  Sex: Female

DRUGS (2)
  1. RIBAVIRIN [Suspect]
     Indication: HEPATITIS C
     Dates: start: 20070803, end: 20080201
  2. PEG-INTRON [Suspect]
     Indication: HEPATITIS C
     Dates: start: 20070803, end: 20080201

REACTIONS (3)
  - INFLUENZA LIKE ILLNESS [None]
  - DEHYDRATION [None]
  - MITRAL VALVE DISEASE [None]
